FAERS Safety Report 13907144 (Version 3)
Quarter: 2017Q4

REPORT INFORMATION
  Report Type: Spontaneous
  Country: US (occurrence: US)
  Receive Date: 20170825
  Receipt Date: 20171020
  Transmission Date: 20180320
  Serious: Yes (Other)
  Sender: FDA-Public Use
  Company Number: US-ALLERGAN-1747106US

PATIENT
  Age: 70 Year
  Sex: Male

DRUGS (2)
  1. LINZESS [Suspect]
     Active Substance: LINACLOTIDE
     Indication: CONSTIPATION
     Dosage: 145 ?G, PRN
     Route: 048
     Dates: start: 20170214
  2. LINZESS [Suspect]
     Active Substance: LINACLOTIDE
     Dosage: 72 ?G, PRN
     Route: 048
     Dates: end: 201709

REACTIONS (10)
  - Constipation [Unknown]
  - Faeces discoloured [Recovering/Resolving]
  - Haemorrhoids [Not Recovered/Not Resolved]
  - Stress [Unknown]
  - Proctitis [Not Recovered/Not Resolved]
  - Neoplasm malignant [Recovered/Resolved]
  - Blood disorder [Recovering/Resolving]
  - Inappropriate schedule of drug administration [Unknown]
  - Haematochezia [Recovering/Resolving]
  - Anxiety [Unknown]

NARRATIVE: CASE EVENT DATE: 20170718
